FAERS Safety Report 18065468 (Version 11)
Quarter: 2021Q2

REPORT INFORMATION
  Report Type: Report from Study
  Country: None (occurrence: NL)
  Receive Date: 20200724
  Receipt Date: 20210406
  Transmission Date: 20210717
  Serious: Yes (Hospitalization, Other)
  Sender: FDA-Public Use
  Company Number: NL-ABBVIE-20K-114-3496556-00

PATIENT
  Sex: Male

DRUGS (6)
  1. DUODOPA [Suspect]
     Active Substance: CARBIDOPA\LEVODOPA
     Dosage: MD: 11.0ML, CD: 2.8ML/H, ED: 1.5ML
     Route: 050
  2. DUODOPA [Suspect]
     Active Substance: CARBIDOPA\LEVODOPA
     Dosage: MD: 11.0ML, CD: 3.2ML/H, ED: 1.5ML, REMAINS AT 16 HOURS
     Route: 050
  3. MACROGOL [Concomitant]
     Active Substance: POLYETHYLENE GLYCOLS
     Indication: ABNORMAL FAECES
  4. DUODOPA [Suspect]
     Active Substance: CARBIDOPA\LEVODOPA
     Indication: PARKINSON^S DISEASE
     Dosage: MD: 11.0ML, CD: 3.3ML/H, ED: 1.5ML, REMAINED AT 16 HOURS
     Route: 050
     Dates: start: 20170602
  5. LEVODOPA [Concomitant]
     Active Substance: LEVODOPA
     Indication: PARKINSON^S DISEASE
     Dosage: PROLONGED RELEASE
  6. TERRA?CORTRIL [Concomitant]
     Active Substance: HYDROCORTISONE ACETATE\OXYTETRACYCLINE HYDROCHLORIDE
     Indication: FIBROMA

REACTIONS (13)
  - Wound secretion [Recovered/Resolved]
  - Unevaluable event [Unknown]
  - Wound complication [Not Recovered/Not Resolved]
  - Hip arthroplasty [Recovered/Resolved]
  - Wound haemorrhage [Recovered/Resolved]
  - Weight decreased [Recovering/Resolving]
  - Mobility decreased [Not Recovered/Not Resolved]
  - Device occlusion [Not Recovered/Not Resolved]
  - Complication associated with device [Unknown]
  - On and off phenomenon [Unknown]
  - Soft tissue neoplasm [Unknown]
  - Wound haemorrhage [Recovered/Resolved]
  - Dyskinesia [Unknown]

NARRATIVE: CASE EVENT DATE: 2020
